FAERS Safety Report 10012039 (Version 1)
Quarter: 2014Q1

REPORT INFORMATION
  Report Type: Spontaneous
  Country: IE (occurrence: IE)
  Receive Date: 20140314
  Receipt Date: 20140314
  Transmission Date: 20141002
  Serious: Yes (Other)
  Sender: FDA-Public Use
  Company Number: IE-UCBSA-114258

PATIENT
  Age: 10 Year
  Sex: Male
  Weight: 40 kg

DRUGS (2)
  1. VIMPAT [Suspect]
     Dosage: 10 MG/ML
  2. VANCOMYCIN [Suspect]

REACTIONS (1)
  - Renal failure acute [Unknown]
